FAERS Safety Report 6889802-X (Version None)
Quarter: 2010Q3

REPORT INFORMATION
  Report Type: 
  Country: None (occurrence: None)
  Receive Date: 20100730
  Receipt Date: 20080502
  Transmission Date: 20110219
  Serious: No
  Sender: FDA-Public Use
  Company Number: US-PFIZER INC-2008038432

PATIENT
  Age: 78 Year
  Sex: Female
  Weight: 72.727 kg

DRUGS (8)
  1. LIPITOR [Suspect]
     Indication: BLOOD CHOLESTEROL INCREASED
  2. TRICOR [Concomitant]
  3. ALPRAZOLAM [Concomitant]
  4. UBIDECARENONE [Concomitant]
  5. MULTI-VITAMINS [Concomitant]
  6. VITAMIN D [Concomitant]
  7. CALCIUM [Concomitant]
  8. ACETYLSALICYLIC ACID SRT [Concomitant]

REACTIONS (1)
  - PROTEIN URINE PRESENT [None]
